FAERS Safety Report 7078369-1 (Version None)
Quarter: 2010Q4

REPORT INFORMATION
  Report Type: 
  Country: None (occurrence: None)
  Receive Date: 20101102
  Receipt Date: 20101025
  Transmission Date: 20110411
  Serious: Yes (Other)
  Sender: FDA-Public Use
  Company Number: US-BAYER-201038569NA

PATIENT
  Sex: Female

DRUGS (1)
  1. OCELLA [Suspect]
     Dates: start: 20090901

REACTIONS (1)
  - COLITIS ISCHAEMIC [None]
